FAERS Safety Report 9825956 (Version 2)
Quarter: 2014Q1

REPORT INFORMATION
  Report Type: Spontaneous
  Country: US (occurrence: US)
  Receive Date: 20140117
  Receipt Date: 20140117
  Transmission Date: 20141002
  Serious: No
  Sender: FDA-Public Use
  Company Number: US-ASTRAZENECA-2013SE89608

PATIENT
  Age: 559 Month
  Sex: Male
  Weight: 78.9 kg

DRUGS (5)
  1. SEROQUEL XR [Suspect]
     Indication: DEPRESSION
     Route: 048
     Dates: start: 20130614
  2. SEROQUEL XR [Suspect]
     Indication: AGGRESSION
     Route: 048
     Dates: start: 20130614
  3. ESCITALOPRAM [Concomitant]
     Indication: OBSESSIVE-COMPULSIVE DISORDER
  4. LORAZEPAM [Concomitant]
     Indication: CATATONIA
  5. PINDPROL [Concomitant]
     Indication: BIPOLAR DISORDER

REACTIONS (4)
  - Decreased appetite [Not Recovered/Not Resolved]
  - Obsessive-compulsive disorder [Not Recovered/Not Resolved]
  - Mood altered [Not Recovered/Not Resolved]
  - Abnormal behaviour [Recovering/Resolving]
